FAERS Safety Report 4601943-6 (Version None)
Quarter: 2005Q1

REPORT INFORMATION
  Report Type: 
  Country: None (occurrence: None)
  Receive Date: 20050215
  Receipt Date: 20041206
  Transmission Date: 20050727
  Serious: Yes (Hospitalization)
  Sender: FDA-Public Use
  Company Number: 388629

PATIENT
  Age: 58 Year
  Sex: Female

DRUGS (2)
  1. PEGASYS [Suspect]
     Dosage: SUBCUTANEOUS
     Route: 058
     Dates: start: 20041008
  2. COPEGUS [Suspect]
     Dosage: ORAL
     Route: 048
     Dates: start: 20041008

REACTIONS (8)
  - ANAEMIA [None]
  - ANOREXIA [None]
  - BLOOD BILIRUBIN INCREASED [None]
  - DIARRHOEA [None]
  - HEADACHE [None]
  - SEPSIS [None]
  - THROMBOCYTOPENIA [None]
  - VOMITING [None]
